FAERS Safety Report 11273737 (Version 2)
Quarter: 2015Q3

REPORT INFORMATION
  Report Type: Spontaneous
  Country: BE (occurrence: BE)
  Receive Date: 20150715
  Receipt Date: 20150812
  Transmission Date: 20151125
  Serious: Yes (Hospitalization, Other)
  Sender: FDA-Public Use
  Company Number: BE-ASTRAZENECA-2015SE67648

PATIENT
  Age: 21947 Day
  Sex: Male

DRUGS (6)
  1. LIPANTHYLNANO [Concomitant]
     Active Substance: FENOFIBRATE
  2. ONGLYZA [Suspect]
     Active Substance: SAXAGLIPTIN HYDROCHLORIDE
     Indication: DIABETES MELLITUS
     Route: 048
     Dates: start: 201008, end: 20150127
  3. OLMETEC [Concomitant]
     Active Substance: OLMESARTAN MEDOXOMIL
  4. METFORMAX [Concomitant]
     Active Substance: METFORMIN HYDROCHLORIDE
  5. NOVONORM [Concomitant]
     Active Substance: REPAGLINIDE
  6. ADALAT [Concomitant]
     Active Substance: NIFEDIPINE

REACTIONS (1)
  - Pancreatitis acute [Recovered/Resolved]

NARRATIVE: CASE EVENT DATE: 20150116
